FAERS Safety Report 5423809-4 (Version None)
Quarter: 2007Q3

REPORT INFORMATION
  Report Type: 
  Country: None (occurrence: None)
  Receive Date: 20070823
  Receipt Date: 20070816
  Transmission Date: 20080115
  Serious: Yes (Other)
  Sender: FDA-Public Use
  Company Number: US-ELI_LILLY_AND_COMPANY-US200708003526

PATIENT
  Age: 57 Year
  Sex: Female

DRUGS (6)
  1. BYETTA [Suspect]
     Indication: DIABETES MELLITUS
     Dosage: 10 UG, 2/D
     Route: 058
     Dates: start: 20070701, end: 20070701
  2. BYETTA [Suspect]
     Dosage: 5 UG, 2/D
     Route: 058
     Dates: start: 20070701
  3. GLIMEPIRIDE [Concomitant]
     Indication: DIABETES MELLITUS
     Dosage: 8 MG, 2/D
  4. XENICAL [Concomitant]
     Indication: GASTRIC DISORDER
     Dosage: UNK, UNKNOWN
     Dates: end: 20060101
  5. ALL OTHER THERAPEUTIC PRODUCTS [Concomitant]
     Indication: INTESTINAL FUNCTIONAL DISORDER
     Dosage: UNK, UNKNOWN
     Dates: start: 20060101
  6. ALL OTHER THERAPEUTIC PRODUCTS [Concomitant]
     Indication: GASTRIC DISORDER
     Dosage: UNK, UNKNOWN

REACTIONS (4)
  - ABDOMINAL PAIN UPPER [None]
  - DYSPNOEA [None]
  - NAUSEA [None]
  - THROMBOSIS [None]
